FAERS Safety Report 6181512-X (Version None)
Quarter: 2009Q2

REPORT INFORMATION
  Report Type: 
  Country: None (occurrence: None)
  Receive Date: 20090504
  Receipt Date: 20090420
  Transmission Date: 20091009
  Serious: Yes (Hospitalization)
  Sender: FDA-Public Use
  Company Number: WAES 0904USA01068

PATIENT
  Age: 72 Year
  Sex: Male

DRUGS (21)
  1. PRINIVIL [Suspect]
     Dosage: 20 MG/DAILY PO
     Route: 048
     Dates: start: 20090110
  2. SAXAGLIPTIN [Suspect]
     Indication: TYPE 2 DIABETES MELLITUS
     Dosage: 2.5 MG/UNK PO
     Route: 048
     Dates: start: 20070730
  3. FOSINOPRIL SODIUM [Suspect]
  4. NEBIVOLOL HCL [Suspect]
  5. TORSEMIDE [Suspect]
  6. DOXAZOSIN MESYLATE [Suspect]
  7. CARMEN (LERCANIDIPINE HYDROCHLORIDE) [Suspect]
  8. PLACEBO (UNSPECIFIED) [Suspect]
     Indication: TYPE 2 DIABETES MELLITUS
     Dosage: PO
     Route: 048
  9. INSUMAN COMB 25 [Concomitant]
  10. NOVAMINSULFON [Concomitant]
  11. TRAMADOL HCL [Concomitant]
  12. ALLOPURINOL [Concomitant]
  13. AMLODIPINE [Concomitant]
  14. AMOXICILLIN AND CLAVULANATE POTASSIUM [Concomitant]
  15. ASPIRIN [Concomitant]
  16. BISOPROLOL FUMARATE [Concomitant]
  17. CEFUROXIME SODIUM [Concomitant]
  18. LISINOPRIL [Concomitant]
  19. METOPROLOL TARTRATE [Concomitant]
  20. TORSEMIDE [Concomitant]
  21. XIPAMIDE [Concomitant]

REACTIONS (13)
  - ABDOMINAL PAIN UPPER [None]
  - BLOOD CREATININE INCREASED [None]
  - BLOOD UREA INCREASED [None]
  - BUNDLE BRANCH BLOCK LEFT [None]
  - CARDIAC FAILURE [None]
  - LOBAR PNEUMONIA [None]
  - LOSS OF CONSCIOUSNESS [None]
  - ORTHOSTATIC HYPOTENSION [None]
  - PLEURAL EFFUSION [None]
  - PULMONARY CONGESTION [None]
  - PULMONARY OEDEMA [None]
  - QRS AXIS ABNORMAL [None]
  - SYNCOPE [None]
